FAERS Safety Report 6100388-X (Version None)
Quarter: 2009Q1

REPORT INFORMATION
  Report Type: 
  Country: None (occurrence: None)
  Receive Date: 20090303
  Receipt Date: 20090219
  Transmission Date: 20090719
  Serious: Yes (Other)
  Sender: FDA-Public Use
  Company Number: US-PFIZER INC-2008156047

PATIENT
  Age: 80 Year
  Sex: Male
  Weight: 80.272 kg

DRUGS (15)
  1. LOMOTIL [Suspect]
  2. TAMSULOSIN [Concomitant]
     Indication: URINARY TRACT DISORDER
     Dosage: 0.4 MG, 1X/DAY
  3. DETROL LA [Concomitant]
     Indication: URINARY TRACT DISORDER
     Dosage: 4 MG, 1X/DAY
  4. ASPIRIN [Concomitant]
     Indication: CEREBROVASCULAR ACCIDENT PROPHYLAXIS
     Dosage: 81 MG, 1X/DAY
  5. MULTI-VITAMINS [Concomitant]
     Dosage: UNK
  6. OSCAL [Concomitant]
     Indication: NEPHROLITHIASIS
     Dosage: 500 MG, 2X/DAY
  7. PACERONE [Concomitant]
     Indication: ARRHYTHMIA
     Dosage: 400 MG, 2X/DAY
  8. NORVASC [Concomitant]
     Dosage: 10 MG, 1X/DAY
  9. METOPROLOL [Concomitant]
     Indication: HYPERTENSION
     Dosage: 50 MG, 2X/DAY
  10. LASIX [Concomitant]
     Dosage: 40 MG, 1X/DAY
  11. EFFEXOR [Concomitant]
     Indication: AFFECTIVE DISORDER
     Dosage: 75 MG, 1X/DAY
  12. FERROUS SULFATE [Concomitant]
     Dosage: 325 MG, 2X/DAY
  13. CALCITRIOL [Concomitant]
     Dosage: 0.25 MG, 1X/DAY
  14. SOTALOL [Concomitant]
     Indication: HYPERTENSION
     Dosage: 80 MG, 1X/DAY
  15. PROCRIT [Concomitant]
     Dosage: 2000 UNIT TWICE A MONTH

REACTIONS (2)
  - DISABILITY [None]
  - DRUG INEFFECTIVE [None]
